FAERS Safety Report 8726018 (Version 2)
Quarter: 2012Q4

REPORT INFORMATION
  Report Type: 
  Country: DE (occurrence: DE)
  Receive Date: 20120816
  Receipt Date: 20120905
  Transmission Date: 20130627
  Serious: Yes (Other)
  Sender: FDA-Public Use
  Company Number: DE-PAR PHARMACEUTICAL, INC-2012SCPR004559

PATIENT

DRUGS (3)
  1. DIAZEPAM [Suspect]
     Indication: PRODUCT USED FOR UNKNOWN INDICATION
     Dosage: UNK, Unknown
     Route: 065
  2. LYRICA [Suspect]
     Indication: PRODUCT USED FOR UNKNOWN INDICATION
     Dosage: }= 900 mg, / day
     Route: 048
  3. METHADONE [Suspect]
     Indication: DRUG ABUSE
     Dosage: UNK, Unknown
     Route: 065

REACTIONS (6)
  - Intentional drug misuse [Unknown]
  - Delusion [Unknown]
  - Agitation [Unknown]
  - Panic attack [Unknown]
  - Aggression [Unknown]
  - Thinking abnormal [Unknown]
